FAERS Safety Report 7913287-5 (Version None)
Quarter: 2011Q4

REPORT INFORMATION
  Report Type: 
  Country: None (occurrence: None)
  Receive Date: 20111114
  Receipt Date: 20111103
  Transmission Date: 20120403
  Serious: Yes (Hospitalization)
  Sender: FDA-Public Use
  Company Number: CH-ASTRAZENECA-2011SE66829

PATIENT
  Age: 29 Year
  Sex: Male

DRUGS (6)
  1. MIDAZOLAM HCL [Suspect]
     Indication: RESTLESSNESS
     Route: 051
     Dates: start: 20110801, end: 20110801
  2. SEROQUEL XR [Suspect]
     Indication: SCHIZOPHRENIA
     Route: 048
  3. LORAZEPAM [Suspect]
     Indication: RESTLESSNESS
     Route: 048
     Dates: start: 20110818, end: 20110824
  4. MIDAZOLAM HCL [Suspect]
     Indication: AGITATION
     Route: 051
     Dates: start: 20110801, end: 20110801
  5. SEROQUEL XR [Suspect]
     Route: 048
     Dates: start: 20110817, end: 20110818
  6. LORAZEPAM [Suspect]
     Indication: AGITATION
     Route: 048
     Dates: start: 20110818, end: 20110824

REACTIONS (12)
  - ELECTROCARDIOGRAM QT PROLONGED [None]
  - HYPERTONIA [None]
  - BLOOD CREATINE PHOSPHOKINASE INCREASED [None]
  - MYOCLONUS [None]
  - PYREXIA [None]
  - SUPRAVENTRICULAR TACHYCARDIA [None]
  - AGITATION [None]
  - ELECTROCARDIOGRAM ABNORMAL [None]
  - RHABDOMYOLYSIS [None]
  - RENAL FAILURE ACUTE [None]
  - CONFUSIONAL STATE [None]
  - NEUROLEPTIC MALIGNANT SYNDROME [None]
